FAERS Safety Report 13450172 (Version 1)
Quarter: 2017Q2

REPORT INFORMATION
  Report Type: Spontaneous
  Country: US (occurrence: US)
  Receive Date: 20170417
  Receipt Date: 20170417
  Transmission Date: 20170830
  Serious: No
  Sender: FDA-Public Use
  Company Number: US-BION-20160451

PATIENT
  Age: 50 Year
  Sex: Male
  Weight: 72.57 kg

DRUGS (4)
  1. ALEVE [Suspect]
     Active Substance: NAPROXEN SODIUM
     Indication: PAIN
     Dosage: USUALLY 2, SOMETIMES 3 OR 4
     Route: 048
  2. PEPTO-BISMOL [Concomitant]
     Active Substance: BISMUTH SUBSALICYLATE
  3. UNKNOWN SORE-THROAT SPRAY [Concomitant]
  4. UNKNOWN OTC ANTI-DIARRHEA (LOPERMID) [Concomitant]

REACTIONS (3)
  - Drug ineffective [Unknown]
  - Drug effect incomplete [Unknown]
  - Incorrect dose administered [Unknown]
